FAERS Safety Report 17536476 (Version 1)
Quarter: 2020Q1

REPORT INFORMATION
  Report Type: Spontaneous
  Country: US (occurrence: US)
  Receive Date: 20200313
  Receipt Date: 20200313
  Transmission Date: 20200409
  Serious: No
  Sender: FDA-Public Use
  Company Number: US-GW PHARMA-202003USGW00899

PATIENT

DRUGS (2)
  1. EPIDIOLEX [Suspect]
     Active Substance: CANNABIDIOL
     Indication: LENNOX-GASTAUT SYNDROME
     Dosage: 180 MILLIGRAM, BID
     Route: 048
     Dates: start: 20190104
  2. EPIDIOLEX [Suspect]
     Active Substance: CANNABIDIOL
     Dosage: UNK (LOWERED DOSE)
     Route: 048

REACTIONS (2)
  - Aggression [Recovered/Resolved]
  - Mood altered [Recovered/Resolved]
